FAERS Safety Report 4291441-4 (Version None)
Quarter: 2004Q1

REPORT INFORMATION
  Report Type: 
  Country: None (occurrence: None)
  Receive Date: 20040211
  Receipt Date: 20040109
  Transmission Date: 20041129
  Serious: Yes (Disabling)
  Sender: FDA-Public Use
  Company Number: FR-BRISTOL-MYERS SQUIBB COMPANY-12475125

PATIENT
  Age: 79 Year
  Sex: Female

DRUGS (2)
  1. VASTEN TABS 20 MG [Suspect]
     Indication: HYPERCHOLESTEROLAEMIA
     Route: 048
     Dates: start: 20010313, end: 20040106
  2. FLECAINE [Concomitant]
     Indication: SUPRAVENTRICULAR EXTRASYSTOLES
     Route: 048
     Dates: start: 20030901

REACTIONS (2)
  - MUSCLE RUPTURE [None]
  - PAIN [None]
